FAERS Safety Report 6080411-1 (Version None)
Quarter: 2009Q1

REPORT INFORMATION
  Report Type: 
  Country: None (occurrence: None)
  Receive Date: 20090217
  Receipt Date: 20041216
  Transmission Date: 20090719
  Serious: Yes (Other)
  Sender: FDA-Public Use
  Company Number: CO-PFIZER INC-2005015133

PATIENT
  Sex: Male

DRUGS (1)
  1. GENOTROPIN [Suspect]
     Dosage: 1.6 MG, DAILY, 6 DAYS A WEEK
     Route: 058
     Dates: start: 20011015

REACTIONS (2)
  - HEPATOMEGALY [None]
  - OEDEMA PERIPHERAL [None]
